FAERS Safety Report 8862169 (Version 2)
Quarter: 2012Q4

REPORT INFORMATION
  Report Type: 
  Country: FR (occurrence: FR)
  Receive Date: 20121026
  Receipt Date: 20121123
  Transmission Date: 20130627
  Serious: Yes (Life-Threatening)
  Sender: FDA-Public Use
  Company Number: FR-SANOFI-AVENTIS-2012SA077954

PATIENT
  Age: 75 Year
  Sex: Male
  Weight: 94 kg

DRUGS (2)
  1. PLAVIX [Suspect]
     Indication: ISCHAEMIC STROKE NOS
     Route: 065
  2. ANTITHROMBOTIC AGENTS [Suspect]
     Indication: TOTAL KNEE REPLACEMENT
     Route: 065
     Dates: start: 20121006

REACTIONS (1)
  - Pulmonary embolism [Not Recovered/Not Resolved]
